FAERS Safety Report 8188058-8 (Version None)
Quarter: 2012Q1

REPORT INFORMATION
  Report Type: 
  Country: None (occurrence: None)
  Receive Date: 20120306
  Receipt Date: 20120229
  Transmission Date: 20120608
  Serious: No
  Sender: FDA-Public Use
  Company Number: US-PFIZER INC-2012043089

PATIENT
  Sex: Female

DRUGS (2)
  1. NICOTROL [Suspect]
     Dosage: UNK
  2. NICOTROL [Suspect]
     Dosage: UNK

REACTIONS (3)
  - DRUG EFFECT DECREASED [None]
  - DYSGEUSIA [None]
  - PRODUCT QUALITY ISSUE [None]
